FAERS Safety Report 13071701 (Version 1)
Quarter: 2016Q4

REPORT INFORMATION
  Report Type: Spontaneous
  Country: US (occurrence: US)
  Receive Date: 20161228
  Receipt Date: 20161228
  Transmission Date: 20170207
  Serious: No
  Sender: FDA-Public Use
  Company Number: None

PATIENT
  Sex: Female

DRUGS (1)
  1. EPCLUSA [Suspect]
     Active Substance: SOFOSBUVIR\VELPATASVIR
     Indication: HEPATITIS C
     Dosage: 400/100MG ONCE A DAY ORAL
     Route: 048
     Dates: start: 201612

REACTIONS (4)
  - Nausea [None]
  - Vomiting [None]
  - Fatigue [None]
  - Asthenia [None]
